FAERS Safety Report 8178676-5 (Version None)
Quarter: 2012Q1

REPORT INFORMATION
  Report Type: 
  Country: None (occurrence: None)
  Receive Date: 20120301
  Receipt Date: 20120301
  Transmission Date: 20120608
  Serious: Yes (Other)
  Sender: FDA-Public Use
  Company Number: US-PFIZER INC-2011298764

PATIENT
  Sex: Male

DRUGS (4)
  1. CHANTIX [Suspect]
     Indication: SMOKING CESSATION THERAPY
     Dosage: 0.5 MG AND 1.0 MG
     Dates: start: 20070822, end: 20071120
  2. CHANTIX [Suspect]
     Dosage: 0.5 MG AND 1.0 MG
     Dates: start: 20080226, end: 20080620
  3. CHANTIX [Suspect]
     Dosage: 0.5 MG AND 1.0 MG
     Dates: start: 20090309, end: 20090520
  4. IBUPROFEN [Concomitant]
     Indication: PAIN
     Dosage: UNK
     Dates: start: 20070822

REACTIONS (5)
  - LOSS OF CONSCIOUSNESS [None]
  - MENTAL DISORDER [None]
  - LACERATION [None]
  - DEPRESSION [None]
  - ANXIETY [None]
